FAERS Safety Report 6149103-4 (Version None)
Quarter: 2009Q2

REPORT INFORMATION
  Report Type: 
  Country: None (occurrence: None)
  Receive Date: 20090407
  Receipt Date: 20090327
  Transmission Date: 20091009
  Serious: Yes (Hospitalization)
  Sender: FDA-Public Use
  Company Number: WAES 0810USA02057

PATIENT
  Age: 73 Year
  Sex: Male

DRUGS (18)
  1. CAP VORINOSTAT [Suspect]
     Indication: ADENOCARCINOMA
     Dosage: 400 MG/DAILY, PO
     Route: 048
     Dates: start: 20080701, end: 20080714
  2. CAP VORINOSTAT [Suspect]
     Indication: ADENOCARCINOMA
     Dosage: 400 MG/DAILY, PO
     Route: 048
     Dates: start: 20080725, end: 20080807
  3. CAP VORINOSTAT [Suspect]
     Indication: ADENOCARCINOMA
     Dosage: 400 MG/DAILY, PO
     Route: 048
     Dates: start: 20080815, end: 20080828
  4. CAP VORINOSTAT [Suspect]
     Indication: ADENOCARCINOMA
     Dosage: 400 MG/DAILY, PO
     Route: 048
     Dates: start: 20080905, end: 20080918
  5. CAP VORINOSTAT [Suspect]
     Indication: ADENOCARCINOMA
     Dosage: 400 MG/DAILY, PO
     Route: 048
     Dates: start: 20081002, end: 20081015
  6. CARBOPLATIN [Suspect]
     Indication: ADENOCARCINOMA
     Dosage: 714 MG, IIV;  715 MG, IV
     Route: 042
     Dates: start: 20080704, end: 20080704
  7. CARBOPLATIN [Suspect]
     Indication: ADENOCARCINOMA
     Dosage: 714 MG, IIV;  715 MG, IV
     Route: 042
     Dates: start: 20080725, end: 20080725
  8. CARBOPLATIN [Suspect]
     Indication: ADENOCARCINOMA
     Dosage: 714 MG, IIV;  715 MG, IV
     Route: 042
     Dates: start: 20080815, end: 20080815
  9. CARBOPLATIN [Suspect]
     Indication: ADENOCARCINOMA
     Dosage: 714 MG, IIV;  715 MG, IV
     Route: 042
     Dates: start: 20080905, end: 20080905
  10. CARBOPLATIN [Suspect]
     Indication: ADENOCARCINOMA
     Dosage: 714 MG, IIV;  715 MG, IV
     Route: 042
     Dates: start: 20081002, end: 20081002
  11. PACLITAXEL [Suspect]
     Indication: ADENOCARCINOMA
     Dosage: 400 MG, IV;  399 MG,  IV
     Route: 042
     Dates: start: 20080704, end: 20080704
  12. PACLITAXEL [Suspect]
     Indication: ADENOCARCINOMA
     Dosage: 400 MG, IV;  399 MG,  IV
     Route: 042
     Dates: start: 20080725, end: 20080725
  13. PACLITAXEL [Suspect]
     Indication: ADENOCARCINOMA
     Dosage: 400 MG, IV;  399 MG,  IV
     Route: 042
     Dates: start: 20080815, end: 20080815
  14. PACLITAXEL [Suspect]
     Indication: ADENOCARCINOMA
     Dosage: 400 MG, IV;  399 MG,  IV
     Route: 042
     Dates: start: 20080905, end: 20080905
  15. PACLITAXEL [Suspect]
     Indication: ADENOCARCINOMA
     Dosage: 400 MG, IV;  399 MG,  IV
     Route: 042
     Dates: start: 20081002, end: 20081002
  16. TAVEGYL [THERAPY UNSPECIFIED] [Concomitant]
  17. ONDANSETRON [Concomitant]
  18. PREDNISOLONE [Concomitant]

REACTIONS (2)
  - ANAEMIA [None]
  - NEUTROPENIA [None]
